FAERS Safety Report 5051230-X (Version None)
Quarter: 2006Q3

REPORT INFORMATION
  Report Type: 
  Country: None (occurrence: None)
  Receive Date: 20060714
  Receipt Date: 20060704
  Transmission Date: 20061208
  Serious: Yes (Other)
  Sender: FDA-Public Use
  Company Number: PHNU2006DE02454

PATIENT
  Age: 9 Year
  Sex: Female

DRUGS (5)
  1. TRILEPTAL [Suspect]
     Indication: CONVULSION
     Dates: end: 20060601
  2. TRILEPTAL [Suspect]
     Dosage: 25 MG/KG/D
     Dates: start: 20060602
  3. TRILEPTAL [Suspect]
     Dosage: 10 MG/KG/D
  4. SANDIMMUNE [Suspect]
     Indication: STEM CELL TRANSPLANT
     Dosage: 120 MG, BID
  5. ANTIHYPERTENSIVE DRUGS [Concomitant]

REACTIONS (5)
  - AGITATION [None]
  - DRUG INTERACTION [None]
  - DRUG LEVEL DECREASED [None]
  - DRUG LEVEL INCREASED [None]
  - TREMOR [None]
